FAERS Safety Report 8615018-2 (Version None)
Quarter: 2012Q3

REPORT INFORMATION
  Report Type: 
  Country: None (occurrence: None)
  Receive Date: 20120823
  Receipt Date: 20120817
  Transmission Date: 20120928
  Serious: Yes (Other)
  Sender: FDA-Public Use
  Company Number: US-BAYER-2012-086442

PATIENT
  Age: 64 Year
  Sex: Female
  Weight: 100 kg

DRUGS (26)
  1. NITROGLYCERIN [Concomitant]
     Dosage: UNK
     Dates: start: 20040618, end: 20040618
  2. PANCURONIUM BROMIDE [Concomitant]
     Dosage: UNK
     Dates: start: 20040618, end: 20040618
  3. EPINEPHRINE [Concomitant]
     Dosage: UNK
     Dates: start: 20040618, end: 20040618
  4. RED BLOOD CELLS [Concomitant]
  5. ASPIRIN [Concomitant]
  6. HYDRALAZINE HCL [Concomitant]
     Dosage: 50 MG, ONCE
     Route: 048
     Dates: start: 20040615, end: 20040615
  7. LASIX [Concomitant]
     Dosage: UNK
     Dates: start: 20040614
  8. TRASYLOL [Suspect]
     Indication: MITRAL VALVE REPAIR
  9. IMDUR [Concomitant]
     Dosage: 30 MG, QD
     Route: 048
     Dates: start: 20040617, end: 20040618
  10. METOCLOPRAMIDE [Concomitant]
     Dosage: UNK
     Dates: start: 20040618, end: 20040618
  11. NITROGLYCERIN [Concomitant]
     Dosage: UNK
     Dates: start: 20040614
  12. ACETYLCYSTEINE [Concomitant]
     Dosage: 600 MG, BID
     Route: 048
     Dates: start: 20040614, end: 20040614
  13. DEXAMETHASONE [Concomitant]
     Dosage: UNK
     Dates: start: 20040618, end: 20040618
  14. FAMOTIDINE [Concomitant]
     Dosage: UNK
     Dates: start: 20040618, end: 20040618
  15. OMNIPAQUE 140 [Concomitant]
     Indication: CATHETERISATION CARDIAC
     Dosage: 106 CC
     Dates: start: 20040615
  16. TRASYLOL [Suspect]
     Indication: CORONARY ARTERY BYPASS
     Dosage: 200 ML, PRIME
     Dates: start: 20040618
  17. INSULIN [Concomitant]
  18. LIPITOR [Concomitant]
  19. FENTANYL [Concomitant]
     Dosage: UNK
     Dates: start: 20040618, end: 20040618
  20. MILRINONE LACTATE [Concomitant]
  21. HEPARIN [Concomitant]
     Dosage: 5000 U, BID
     Route: 058
  22. MORPHINE [Concomitant]
     Dosage: 2 MG, ONCE
     Route: 042
     Dates: start: 20040617, end: 20040617
  23. MIDAZOLAM [Concomitant]
     Dosage: UNK
     Dates: start: 20040618, end: 20040618
  24. METOPROLOL TARTRATE [Concomitant]
     Dosage: 25 MG, BID
     Route: 048
     Dates: start: 20040614, end: 20040614
  25. CLONIDINE [Concomitant]
     Dosage: 0.2 MG, ONCE
     Route: 048
     Dates: start: 20040616, end: 20040616
  26. CLINDAMYCIN [Concomitant]
     Dosage: 900 MG, UNK
     Dates: start: 20040618, end: 20040618

REACTIONS (1)
  - RENAL FAILURE ACUTE [None]
